FAERS Safety Report 6305691-6 (Version None)
Quarter: 2009Q3

REPORT INFORMATION
  Report Type: 
  Country: None (occurrence: None)
  Receive Date: 20090807
  Receipt Date: 20090727
  Transmission Date: 20100115
  Serious: No
  Sender: FDA-Public Use
  Company Number: DSU-2009-01428

PATIENT
  Age: 67 Year
  Sex: Male
  Weight: 68.0396 kg

DRUGS (4)
  1. WELCHOL [Suspect]
     Indication: HYPERCHOLESTEROLAEMIA
     Dosage: 1875 MG (1875 MG, QD), PER ORAL
     Route: 048
  2. STATIN (INGREDIENTS UNKNOWN) [Concomitant]
  3. LEVOXYL (LEVOTHYROXINE SODIUM) (LEVOTHYROXINE SODIUM) [Concomitant]
  4. DIOVAN [Concomitant]

REACTIONS (2)
  - DYSPHAGIA [None]
  - PRODUCT SIZE ISSUE [None]
